FAERS Safety Report 21786785 (Version 1)
Quarter: 2022Q4

REPORT INFORMATION
  Report Type: Spontaneous
  Country: IN (occurrence: None)
  Receive Date: 20221228
  Receipt Date: 20221228
  Transmission Date: 20230113
  Serious: Yes (Hospitalization, Other)
  Sender: FDA-Public Use
  Company Number: IN-Unichem Pharmaceuticals (USA) Inc-UCM202212-001327

PATIENT
  Age: 30 Year
  Sex: Male

DRUGS (4)
  1. TRAMADOL HCL [Suspect]
     Active Substance: TRAMADOL HYDROCHLORIDE
     Indication: Back pain
  2. TRAMADOL HCL [Suspect]
     Active Substance: TRAMADOL HYDROCHLORIDE
     Indication: Insomnia
  3. ONDANSETRON [Suspect]
     Active Substance: ONDANSETRON
     Indication: Back pain
  4. ONDANSETRON [Suspect]
     Active Substance: ONDANSETRON
     Indication: Insomnia

REACTIONS (6)
  - Rhabdomyolysis [Recovering/Resolving]
  - Myoglobinuria [Recovered/Resolved]
  - Acute kidney injury [Recovered/Resolved]
  - Seizure [Recovered/Resolved]
  - Serotonin syndrome [Recovered/Resolved]
  - Product use in unapproved indication [Unknown]
